FAERS Safety Report 23265133 (Version 1)
Quarter: 2023Q4

REPORT INFORMATION
  Report Type: Report from Study
  Country: US (occurrence: US)
  Receive Date: 20231206
  Receipt Date: 20231206
  Transmission Date: 20240109
  Serious: Yes (Hospitalization, Other)
  Sender: FDA-Public Use
  Company Number: US-JAZZ PHARMACEUTICALS-2023-US-024003

PATIENT
  Sex: Male

DRUGS (3)
  1. EPIDIOLEX [Suspect]
     Active Substance: CANNABIDIOL
     Indication: Lennox-Gastaut syndrome
     Dosage: 4.4 MILLILITER, BID
     Route: 048
     Dates: start: 202002
  2. RINVOQ [Concomitant]
     Active Substance: UPADACITINIB
     Indication: Product used for unknown indication
  3. HUMIRA [Concomitant]
     Active Substance: ADALIMUMAB
     Indication: Colitis ulcerative

REACTIONS (2)
  - Seizure [Unknown]
  - Haemorrhage [Unknown]
